FAERS Safety Report 5192405-9 (Version None)
Quarter: 2006Q4

REPORT INFORMATION
  Report Type: 
  Country: None (occurrence: None)
  Receive Date: 20061227
  Receipt Date: 20061215
  Transmission Date: 20070319
  Serious: Yes (Hospitalization)
  Sender: FDA-Public Use
  Company Number: FR-PFIZER INC-2006155134

PATIENT
  Age: 45 Year
  Sex: Female

DRUGS (12)
  1. ATARAX (TABLET) [Suspect]
     Dosage: DAILY DOSE:400MG
     Route: 048
  2. ABILIFY [Suspect]
     Dosage: DAILY DOSE:20MG
     Route: 048
  3. NIZORAL [Suspect]
     Dosage: DAILY DOSE:500MG
     Route: 048
     Dates: start: 20060703, end: 20060725
  4. TERCIAN [Concomitant]
  5. IXEL [Concomitant]
  6. IMOVANE [Concomitant]
  7. ALDACTONE [Concomitant]
  8. METOPIRONE [Concomitant]
  9. GLUCOPHAGE [Concomitant]
  10. INSULATARD NPH HUMAN [Concomitant]
  11. STABLON [Concomitant]
  12. NOVONORM [Concomitant]

REACTIONS (3)
  - CUSHING'S SYNDROME [None]
  - SMALL CELL LUNG CANCER STAGE UNSPECIFIED [None]
  - URINARY RETENTION [None]
